FAERS Safety Report 8559957-X (Version None)
Quarter: 2012Q3

REPORT INFORMATION
  Report Type: 
  Country: None (occurrence: None)
  Receive Date: 20120802
  Receipt Date: 20120723
  Transmission Date: 20120928
  Serious: Yes (Other)
  Sender: FDA-Public Use
  Company Number: HR-JNJFOC-20120800212

PATIENT
  Age: 84 Year
  Sex: Female
  Weight: 63 kg

DRUGS (9)
  1. VENTOLIN [Concomitant]
     Indication: PRODUCT USED FOR UNKNOWN INDICATION
     Route: 065
  2. REQUIP [Suspect]
     Indication: PARKINSON'S DISEASE
     Route: 048
  3. MADOPAR [Suspect]
     Indication: PARKINSON'S DISEASE
     Route: 048
  4. TRAMADOL HCL [Suspect]
     Indication: PAIN
     Dosage: 1 DF AS NEEDED
     Route: 048
  5. BISOPROLOL FUMARATE [Suspect]
     Indication: HYPERTENSION
     Route: 048
     Dates: start: 20120524, end: 20120525
  6. NITRAZEPAM [Interacting]
     Indication: PRODUCT USED FOR UNKNOWN INDICATION
     Route: 048
  7. AKINETON [Suspect]
     Indication: PARKINSON'S DISEASE
     Route: 048
  8. FUROSEMIDE [Concomitant]
     Indication: PRODUCT USED FOR UNKNOWN INDICATION
     Route: 065
     Dates: start: 20120524
  9. NITROLINGUAL [Concomitant]
     Indication: PRODUCT USED FOR UNKNOWN INDICATION
     Route: 065

REACTIONS (3)
  - DRUG INTERACTION [None]
  - INSOMNIA [None]
  - HALLUCINATION, AUDITORY [None]
